FAERS Safety Report 8896315 (Version 1)
Quarter: 2012Q4

REPORT INFORMATION
  Report Type: Spontaneous
  Country: US (occurrence: None)
  Receive Date: 20121031
  Receipt Date: 20121031
  Transmission Date: 20130627
  Serious: Yes (Other)
  Sender: FDA-Public Use
  Company Number: AUR-APL-2012-04557

PATIENT
  Age: 35 Year
  Sex: Female

DRUGS (2)
  1. AMLODIPINE (AMLODIPINE) [Suspect]
     Indication: HYPERTENSION
  2. ATENOLOL [Concomitant]

REACTIONS (9)
  - Gingival swelling [None]
  - Mastication disorder [None]
  - Gingival bleeding [None]
  - Gingival pain [None]
  - Blood glucose increased [None]
  - Periodontitis [None]
  - Bone loss [None]
  - Connective tissue disorder [None]
  - Acanthosis [None]
